FAERS Safety Report 5911299-4 (Version None)
Quarter: 2008Q4

REPORT INFORMATION
  Report Type: 
  Country: None (occurrence: None)
  Receive Date: 20081007
  Receipt Date: 20081006
  Transmission Date: 20090506
  Serious: Yes (Hospitalization)
  Sender: FDA-Public Use
  Company Number: US-ROXANE LABORATORIES, INC.-2008-BP-11378RO

PATIENT
  Sex: Female

DRUGS (6)
  1. PREDNISONE TAB [Suspect]
     Indication: RENAL TRANSPLANT
     Dosage: 5MG
     Route: 048
     Dates: start: 20060904
  2. BELATACEPT [Suspect]
     Indication: RENAL TRANSPLANT
     Route: 042
     Dates: start: 20060613
  3. CELLCEPT [Suspect]
     Indication: RENAL TRANSPLANT
     Dosage: 2000MG
     Route: 048
     Dates: start: 20070122, end: 20080630
  4. INSULIN [Concomitant]
  5. SYNTHROID [Concomitant]
  6. CALCIUM + VITAMIN D [Concomitant]
     Dates: start: 20060621

REACTIONS (2)
  - DIARRHOEA [None]
  - WEIGHT DECREASED [None]
